FAERS Safety Report 8987738 (Version 1)
Quarter: 2012Q4

REPORT INFORMATION
  Report Type: 
  Country: US (occurrence: US)
  Receive Date: 20121227
  Receipt Date: 20121227
  Transmission Date: 20130627
  Serious: No
  Sender: FDA-Public Use
  Company Number: US-PFIZER INC-2012326667

PATIENT
  Sex: Male

DRUGS (1)
  1. ADVIL [Suspect]
     Indication: WRIST PAIN
     Dosage: UNK

REACTIONS (1)
  - Lip swelling [Unknown]
